FAERS Safety Report 7688056-4 (Version None)
Quarter: 2011Q3

REPORT INFORMATION
  Report Type: 
  Country: None (occurrence: None)
  Receive Date: 20110817
  Receipt Date: 20110805
  Transmission Date: 20111222
  Serious: Yes (Life-Threatening)
  Sender: FDA-Public Use
  Company Number: GB-SANOFI-AVENTIS-2011SA050505

PATIENT
  Age: 49 Year
  Sex: Female
  Weight: 83.7 kg

DRUGS (9)
  1. CETIRIZINE HCL [Concomitant]
  2. ZOPICLONE [Concomitant]
  3. LEFLUNOMIDE [Suspect]
     Route: 048
     Dates: start: 20100107
  4. LANSOPRAZOLE [Concomitant]
  5. ACETAMINOPHEN [Concomitant]
  6. TRAMADOL HCL [Concomitant]
  7. HARPAGOPHYTUM PROCUMBENS [Concomitant]
  8. ETODOLAC [Concomitant]
  9. LEFLUNOMIDE [Suspect]
     Route: 048
     Dates: start: 20031113

REACTIONS (1)
  - BREAST CANCER [None]
